FAERS Safety Report 7569831-3 (Version None)
Quarter: 2011Q2

REPORT INFORMATION
  Report Type: 
  Country: None (occurrence: None)
  Receive Date: 20110624
  Receipt Date: 20110613
  Transmission Date: 20111010
  Serious: Yes (Hospitalization)
  Sender: FDA-Public Use
  Company Number: CA-JNJFOC-20110606539

PATIENT
  Sex: Female
  Weight: 46 kg

DRUGS (4)
  1. PREDNISONE [Concomitant]
     Route: 048
     Dates: start: 20110412
  2. REMICADE [Suspect]
     Indication: COLITIS ULCERATIVE
     Route: 042
     Dates: start: 20110511
  3. REMICADE [Suspect]
     Route: 042
     Dates: start: 20110525
  4. PENTASA [Concomitant]
     Route: 048
     Dates: start: 20030101

REACTIONS (2)
  - SEPSIS [None]
  - COLECTOMY [None]
